FAERS Safety Report 23079490 (Version 1)
Quarter: 2023Q4

REPORT INFORMATION
  Report Type: Spontaneous
  Country: CZ (occurrence: CZ)
  Receive Date: 20231018
  Receipt Date: 20231018
  Transmission Date: 20240109
  Serious: Yes (Death, Hospitalization, Other)
  Sender: FDA-Public Use
  Company Number: CZ-SA-2018SA305906

PATIENT
  Age: 24 Year
  Sex: Female

DRUGS (10)
  1. FOLIC ACID [Suspect]
     Active Substance: FOLIC ACID
     Indication: Non-small cell lung cancer stage IV
     Dosage: DOSE DESCRIPTION : UNK
     Route: 065
  2. FOLIC ACID [Suspect]
     Active Substance: FOLIC ACID
     Dosage: DOSE DESCRIPTION : UNK
     Route: 065
  3. DOCETAXEL [Suspect]
     Active Substance: DOCETAXEL
     Indication: Lung adenocarcinoma
     Dosage: DOSE DESCRIPTION : UNK UNK, Q3W
     Route: 042
  4. DOCETAXEL [Suspect]
     Active Substance: DOCETAXEL
     Dosage: DOSE DESCRIPTION : UNK, Q3W
     Route: 042
  5. DOCETAXEL [Suspect]
     Active Substance: DOCETAXEL
     Dosage: DAILY 400 MG ADMINISTERED ON DAYS 2-22 OF THE CYCLE IN COMBINATION WITH NINTEDANIB
     Route: 065
  6. PEMETREXED DISODIUM [Suspect]
     Active Substance: PEMETREXED DISODIUM
     Indication: Non-small cell lung cancer stage IV
     Dosage: DOSE DESCRIPTION : UNK
     Route: 065
  7. CISPLATIN [Suspect]
     Active Substance: CISPLATIN
     Indication: Lung adenocarcinoma
     Dosage: DOSE DESCRIPTION : UNK
     Route: 065
  8. DENOSUMAB [Suspect]
     Active Substance: DENOSUMAB
     Indication: Metastases to bone
     Dosage: DOSE DESCRIPTION : UNK
     Route: 065
  9. DENOSUMAB [Suspect]
     Active Substance: DENOSUMAB
     Dosage: DOSE DESCRIPTION : UNK
     Route: 065
  10. NINTEDANIB [Suspect]
     Active Substance: NINTEDANIB
     Indication: Non-small cell lung cancer stage IV
     Dosage: DOSE DESCRIPTION : 400 MILLIGRAM DAILY GIVEN ON CYCLE DAYS 2-22
     Route: 065

REACTIONS (15)
  - Disease progression [Fatal]
  - Oral candidiasis [Unknown]
  - Intestinal haemorrhage [Unknown]
  - Hepatotoxicity [Unknown]
  - Candida infection [Recovered/Resolved]
  - Gastrointestinal toxicity [Unknown]
  - Hypokalaemia [Unknown]
  - Duodenal ulcer haemorrhage [Unknown]
  - Hypocalcaemia [Not Recovered/Not Resolved]
  - Nausea [Unknown]
  - Vomiting [Unknown]
  - Anaemia [Unknown]
  - Diarrhoea [Recovered/Resolved]
  - Oral pain [Unknown]
  - Therapeutic response decreased [Unknown]

NARRATIVE: CASE EVENT DATE: 20140101
